FAERS Safety Report 5675141-1 (Version None)
Quarter: 2008Q1

REPORT INFORMATION
  Report Type: 
  Country: None (occurrence: None)
  Receive Date: 20080320
  Receipt Date: 20080310
  Transmission Date: 20080703
  Serious: Yes (Other)
  Sender: FDA-Public Use
  Company Number: JP-ROCHE-551051

PATIENT
  Age: 84 Year
  Sex: Female
  Weight: 32 kg

DRUGS (12)
  1. TAMIFLU [Suspect]
     Indication: INFLUENZA
     Route: 048
     Dates: start: 20050101, end: 20050103
  2. TAMIFLU [Suspect]
     Route: 048
     Dates: start: 20080222, end: 20080222
  3. TAMIFLU [Suspect]
     Route: 048
     Dates: start: 20080223, end: 20080224
  4. TAMIFLU [Suspect]
     Route: 048
     Dates: start: 20080225, end: 20080225
  5. D-ALFA [Concomitant]
     Dosage: STARTED BEFORE 12 MAY 2003
     Route: 048
  6. ASPARA-CA [Concomitant]
     Dosage: STARTED BEFORE 12 MAY 2003
     Route: 048
  7. VENETLIN [Concomitant]
     Dosage: BEFORE 12 MAY 2003
     Route: 048
  8. THEO-DUR [Concomitant]
     Dosage: FORM: SUSTAINED RELEASE TABLET
     Route: 048
     Dates: start: 20030630
  9. DIGOXIN [Concomitant]
     Dosage: DRUG: HALFDIGOXIN
     Route: 048
     Dates: start: 20041115
  10. VOGLIBOSE [Concomitant]
     Route: 048
     Dates: start: 20060126
  11. ARICEPT [Concomitant]
     Route: 048
     Dates: start: 20070604
  12. PELEX [Concomitant]
     Route: 048
     Dates: start: 20080222, end: 20080225

REACTIONS (4)
  - ARTHRALGIA [None]
  - JOINT SWELLING [None]
  - JOINT WARMTH [None]
  - POLYARTHRITIS [None]
